FAERS Safety Report 7342084-7 (Version None)
Quarter: 2011Q1

REPORT INFORMATION
  Report Type: 
  Country: None (occurrence: None)
  Receive Date: 20110309
  Receipt Date: 20110228
  Transmission Date: 20110831
  Serious: Yes (Hospitalization)
  Sender: FDA-Public Use
  Company Number: DE-ASTRAZENECA-2011SE11748

PATIENT
  Age: 81 Year
  Sex: Male

DRUGS (7)
  1. SEROQUEL XR [Suspect]
     Route: 048
     Dates: start: 20110111
  2. ARCOXIA [Concomitant]
     Route: 048
     Dates: start: 20110111
  3. PANTOZOL [Concomitant]
     Route: 048
     Dates: start: 20110125
  4. ARICEPT [Interacting]
     Route: 048
     Dates: start: 20110118
  5. CLARITHROMYCIN [Interacting]
     Route: 048
     Dates: start: 20110118, end: 20110203
  6. TRANSTEC [Concomitant]
     Route: 062
     Dates: start: 20110107
  7. AMOXICILLIN [Concomitant]
     Route: 048
     Dates: start: 20110118, end: 20110202

REACTIONS (6)
  - UROSEPSIS [None]
  - URINARY RETENTION [None]
  - URETERIC OBSTRUCTION [None]
  - DRUG INTERACTION [None]
  - HYPERTHERMIA [None]
  - PYURIA [None]
